FAERS Safety Report 10210501 (Version 1)
Quarter: 2014Q2

REPORT INFORMATION
  Report Type: Spontaneous
  Country: ID (occurrence: ID)
  Receive Date: 20140602
  Receipt Date: 20140602
  Transmission Date: 20141212
  Serious: Yes (Death, Hospitalization)
  Sender: FDA-Public Use
  Company Number: ID-JNJFOC-20140517037

PATIENT
  Age: 63 Year
  Sex: Male

DRUGS (2)
  1. XARELTO [Suspect]
     Indication: ANTICOAGULANT THERAPY
     Route: 048
  2. ASPILETS [Interacting]
     Indication: ANTICOAGULANT THERAPY
     Route: 065

REACTIONS (5)
  - Haemorrhage intracranial [Fatal]
  - Haematuria [Unknown]
  - Blood pressure increased [Unknown]
  - Activated partial thromboplastin time prolonged [Unknown]
  - Drug interaction [Unknown]
